FAERS Safety Report 21091221 (Version 14)
Quarter: 2024Q1

REPORT INFORMATION
  Report Type: Report from Study
  Country: CA (occurrence: CA)
  Receive Date: 20220716
  Receipt Date: 20240201
  Transmission Date: 20240410
  Serious: Yes (Hospitalization, Other)
  Sender: FDA-Public Use
  Company Number: CA-NOVARTISPH-NVSC2019CA023616

PATIENT
  Age: 74 Year
  Sex: Female

DRUGS (11)
  1. COSENTYX [Suspect]
     Active Substance: SECUKINUMAB
     Indication: Psoriasis
     Dosage: 300 MG, QMO
     Route: 058
     Dates: start: 20190921
  2. COSENTYX [Suspect]
     Active Substance: SECUKINUMAB
     Dosage: 300 MG, QMO
     Route: 058
  3. COSENTYX [Suspect]
     Active Substance: SECUKINUMAB
     Dosage: 300 MG, QMO
     Route: 058
     Dates: start: 20200706
  4. COSENTYX [Suspect]
     Active Substance: SECUKINUMAB
     Dosage: 300 MG, QMO
     Route: 058
  5. COSENTYX [Suspect]
     Active Substance: SECUKINUMAB
     Dosage: UNK
     Route: 065
     Dates: start: 20221126
  6. COSENTYX [Suspect]
     Active Substance: SECUKINUMAB
     Dosage: UNK
     Route: 065
     Dates: start: 20221224
  7. COSENTYX [Suspect]
     Active Substance: SECUKINUMAB
     Dosage: UNK
     Route: 065
     Dates: start: 2023
  8. ACITRETIN [Concomitant]
     Active Substance: ACITRETIN
     Indication: Product used for unknown indication
     Dosage: UNK
     Route: 065
  9. METHOTREXATE [Concomitant]
     Active Substance: METHOTREXATE
     Indication: Product used for unknown indication
     Dosage: UNK
     Route: 065
  10. BETAMETHASONE DIPROPIONATE\CALCIPOTRIENE MONOHYDRATE [Concomitant]
     Active Substance: BETAMETHASONE DIPROPIONATE\CALCIPOTRIENE MONOHYDRATE
     Indication: Product used for unknown indication
     Dosage: UNK
     Route: 065
  11. CYCLOSPORINE [Concomitant]
     Active Substance: CYCLOSPORINE
     Indication: Product used for unknown indication
     Dosage: UNK
     Route: 065

REACTIONS (37)
  - Intestinal obstruction [Unknown]
  - Epilepsy [Unknown]
  - Generalised tonic-clonic seizure [Unknown]
  - Loss of consciousness [Unknown]
  - Thrombosis [Unknown]
  - Cardiovascular insufficiency [Unknown]
  - Fatigue [Unknown]
  - Insomnia [Unknown]
  - Scab [Unknown]
  - Asthenia [Unknown]
  - Hypoaesthesia [Unknown]
  - Paraesthesia [Unknown]
  - Tremor [Unknown]
  - Arthralgia [Unknown]
  - Gait disturbance [Unknown]
  - Pain in extremity [Not Recovered/Not Resolved]
  - Oedema peripheral [Unknown]
  - Weight decreased [Unknown]
  - Injection site reaction [Unknown]
  - Injection site pain [Unknown]
  - Rash [Unknown]
  - Rash pruritic [Not Recovered/Not Resolved]
  - Epistaxis [Recovered/Resolved]
  - Pruritus [Unknown]
  - Erythema [Unknown]
  - Gastrointestinal disorder [Unknown]
  - Cardiac disorder [Unknown]
  - Cardiomegaly [Unknown]
  - Peripheral swelling [Unknown]
  - Eczema [Unknown]
  - Sensitive skin [Unknown]
  - Accidental exposure to product [Unknown]
  - Incorrect dose administered [Unknown]
  - Device defective [Unknown]
  - Product dose omission issue [Unknown]
  - Therapeutic product effect incomplete [Unknown]
  - Phlebitis [Unknown]

NARRATIVE: CASE EVENT DATE: 20191115
